FAERS Safety Report 6608019-7 (Version None)
Quarter: 2010Q1

REPORT INFORMATION
  Report Type: 
  Country: None (occurrence: None)
  Receive Date: 20100301
  Receipt Date: 20100222
  Transmission Date: 20100710
  Serious: Yes (Death)
  Sender: FDA-Public Use
  Company Number: CHPA2010US03736

PATIENT
  Sex: Male

DRUGS (5)
  1. DIPHENHYDRAMINE (NCH) [Suspect]
     Route: 048
  2. ACETYLSALICYLIC ACID SRT [Suspect]
     Route: 048
  3. ANTIHISTAMINES [Suspect]
  4. DIET FORMULATIONS FOR TREATMENT OF OBESITY [Suspect]
  5. HOMEOPATHIC PREPARATIONS [Suspect]

REACTIONS (1)
  - COMPLETED SUICIDE [None]
